FAERS Safety Report 7568862-7 (Version None)
Quarter: 2011Q2

REPORT INFORMATION
  Report Type: 
  Country: None (occurrence: None)
  Receive Date: 20110623
  Receipt Date: 20110616
  Transmission Date: 20111010
  Serious: Yes (Death)
  Sender: FDA-Public Use
  Company Number: JP-GENZYME-THYM-1002538

PATIENT
  Age: 43 Year
  Sex: Male
  Weight: 60 kg

DRUGS (1)
  1. THYMOGLOBULIN [Suspect]
     Indication: GRAFT VERSUS HOST DISEASE
     Dosage: 20 MG/DAY, UNK
     Route: 042
     Dates: start: 20100915, end: 20100915

REACTIONS (3)
  - BLOOD PRESSURE DECREASED [None]
  - MULTI-ORGAN FAILURE [None]
  - PYREXIA [None]
